FAERS Safety Report 25484187 (Version 2)
Quarter: 2025Q3

REPORT INFORMATION
  Report Type: Spontaneous
  Country: US (occurrence: US)
  Receive Date: 20250626
  Receipt Date: 20250708
  Transmission Date: 20251021
  Serious: No
  Sender: SANOFI AVENTIS
  Company Number: US-SA-2025SA178728

PATIENT
  Age: 87 Year
  Sex: Female
  Weight: 90.45 kg

DRUGS (12)
  1. DUPIXENT [Suspect]
     Active Substance: DUPILUMAB
     Indication: Dermatitis atopic
     Dosage: 300 MG, QOW
     Route: 058
     Dates: start: 20230329
  2. TEKTURNA [Concomitant]
     Active Substance: ALISKIREN HEMIFUMARATE
  3. VITAMIN D3 [Concomitant]
     Active Substance: CHOLECALCIFEROL
  4. ISOSORBIDE MONONITRATE [Concomitant]
     Active Substance: ISOSORBIDE MONONITRATE
  5. PLAVIX [Concomitant]
     Active Substance: CLOPIDOGREL BISULFATE
  6. CHLORTHALIDONE [Concomitant]
     Active Substance: CHLORTHALIDONE
  7. BIOTIN [Concomitant]
     Active Substance: BIOTIN
  8. ALLOPURINOL [Concomitant]
     Active Substance: ALLOPURINOL
  9. REPATHA [Concomitant]
     Active Substance: EVOLOCUMAB
  10. LEVOTHYROXINE SODIUM [Concomitant]
     Active Substance: LEVOTHYROXINE SODIUM
  11. ASPIRIN [Concomitant]
     Active Substance: ASPIRIN
  12. NEXIUM [Concomitant]
     Active Substance: ESOMEPRAZOLE MAGNESIUM

REACTIONS (6)
  - Asthenia [Unknown]
  - Hypotension [Unknown]
  - Injection site pain [Unknown]
  - Rash [Unknown]
  - Eczema [Unknown]
  - Therapeutic response decreased [Unknown]

NARRATIVE: CASE EVENT DATE: 20250101
